FAERS Safety Report 7564612-9 (Version None)
Quarter: 2011Q2

REPORT INFORMATION
  Report Type: 
  Country: None (occurrence: None)
  Receive Date: 20110622
  Receipt Date: 20100706
  Transmission Date: 20111010
  Serious: Yes (Death)
  Sender: FDA-Public Use
  Company Number: US-MYLANLABS-2010S1012195

PATIENT
  Age: 81 Year
  Sex: Male

DRUGS (9)
  1. VITAMIN TAB [Concomitant]
  2. MIDODRINE HYDROCHLORIDE [Concomitant]
  3. REQUIP [Concomitant]
  4. CLOZAPINE [Suspect]
     Route: 048
  5. CARBIDOPA + LEVODOPA [Concomitant]
  6. NITROGLYCERIN [Concomitant]
     Route: 062
  7. ARICEPT [Concomitant]
  8. CYMBALTA [Concomitant]
  9. LEVOTHYROXINE SODIUM [Concomitant]

REACTIONS (1)
  - PARKINSON'S DISEASE [None]
